FAERS Safety Report 9068539 (Version 1)
Quarter: 2013Q1

REPORT INFORMATION
  Report Type: Spontaneous
  Country: IN (occurrence: IN)
  Receive Date: 20130206
  Receipt Date: 20130206
  Transmission Date: 20140127
  Serious: Yes (Hospitalization, Other)
  Sender: FDA-Public Use
  Company Number: PHHY2013IN009353

PATIENT
  Age: 41 Year
  Sex: Female
  Weight: 73 kg

DRUGS (7)
  1. VALPROIC ACID [Suspect]
     Indication: EPILEPSY
     Dosage: 400 MG, TID
  2. VALPROIC ACID [Suspect]
     Dosage: 1500 MG, UNK
  3. VALPROIC ACID [Suspect]
     Dosage: 400 MG, TID
  4. PHENYTOIN [Suspect]
     Indication: EPILEPSY
     Dosage: 200 MG, BID
  5. PHENYTOIN [Suspect]
     Dosage: UNK
  6. PHENYTOIN [Suspect]
     Dosage: 1500 MG, OVER 30 MINUTES
     Route: 042
  7. PHENYTOIN [Suspect]
     Dosage: 100 MG, TID

REACTIONS (15)
  - Hypertension [Unknown]
  - Eclampsia [Unknown]
  - Premature baby [Unknown]
  - HELLP syndrome [Unknown]
  - Epistaxis [Recovered/Resolved]
  - Oedema peripheral [Unknown]
  - Convulsion [Recovered/Resolved]
  - Thrombocytopenia [Recovered/Resolved]
  - Aspartate aminotransferase increased [Recovered/Resolved]
  - Alanine aminotransferase increased [Recovered/Resolved]
  - Blood alkaline phosphatase increased [Recovered/Resolved]
  - Blood bilirubin increased [Recovered/Resolved]
  - Protein total increased [Recovered/Resolved]
  - Blood albumin decreased [Recovered/Resolved]
  - Maternal exposure during pregnancy [Unknown]
